FAERS Safety Report 13954096 (Version 1)
Quarter: 2017Q3

REPORT INFORMATION
  Report Type: Spontaneous
  Country: ZA (occurrence: ZA)
  Receive Date: 20170911
  Receipt Date: 20170911
  Transmission Date: 20171128
  Serious: No
  Sender: FDA-Public Use
  Company Number: ZA-LUPIN PHARMACEUTICALS INC.-2016-04779

PATIENT
  Age: 73 Year
  Sex: Female

DRUGS (7)
  1. CALTRATE PLUS 500IU [Concomitant]
     Indication: SUPPLEMENTATION THERAPY
     Dosage: UNK UNK,UNK,
     Route: 048
     Dates: start: 20160323
  2. PREMARIN [Concomitant]
     Indication: HORMONE THERAPY
  3. CITALOPRAM [Concomitant]
     Active Substance: CITALOPRAM HYDROBROMIDE
     Indication: DEPRESSION
     Dosage: UNK UNK,UNK,
     Route: 048
     Dates: start: 20150310
  4. FLEXOCAM [Suspect]
     Active Substance: MELOXICAM
     Indication: INFLAMMATION
     Dosage: IN THE EVENING
     Route: 048
     Dates: start: 20160919
  5. PREMARIN [Concomitant]
     Indication: GENITOURINARY SYMPTOM
     Dosage: IN THE MORNING
     Route: 048
     Dates: start: 20131129
  6. PAX (DIAZEPAM) [Concomitant]
     Active Substance: DIAZEPAM
     Indication: PSYCHOTIC DISORDER
     Dosage: IN THE EVENING
     Route: 048
     Dates: start: 20160128
  7. ENAP CO [Concomitant]
     Indication: BLOOD PRESSURE MEASUREMENT
     Dosage: IN THE MORNING
     Route: 048
     Dates: start: 20150226

REACTIONS (1)
  - Drug ineffective [Unknown]

NARRATIVE: CASE EVENT DATE: 20161017
